FAERS Safety Report 6913692-X (Version None)
Quarter: 2010Q3

REPORT INFORMATION
  Report Type: 
  Country: None (occurrence: None)
  Receive Date: 20100803
  Receipt Date: 20100719
  Transmission Date: 20110219
  Serious: Yes (Death, Life-Threatening, Hospitalization)
  Sender: FDA-Public Use
  Company Number: S05-DEN-01398-01

PATIENT
  Age: 90 Year
  Sex: Female
  Weight: 47 kg

DRUGS (3)
  1. MEMANTINE [Suspect]
     Indication: DEMENTIA ALZHEIMER'S TYPE
     Dosage: 20 MG (10 MG, 2 IN 1 D),ORAL
     Route: 048
     Dates: start: 20031218
  2. METHOTREXATE [Suspect]
     Indication: PSORIASIS
     Dosage: 2.5 MG, ORAL
     Route: 048
     Dates: start: 20050202
  3. PERSANTIN RETARD (200, TABLETS) [Concomitant]

REACTIONS (4)
  - DRUG INTERACTION [None]
  - GRANULOCYTOPENIA [None]
  - LEUKOPENIA [None]
  - THROMBOCYTOPENIA [None]
